FAERS Safety Report 4975984-3 (Version None)
Quarter: 2006Q2

REPORT INFORMATION
  Report Type: 
  Country: None (occurrence: None)
  Receive Date: 20060418
  Receipt Date: 20051004
  Transmission Date: 20061013
  Serious: Yes (Hospitalization, Disabling)
  Sender: FDA-Public Use
  Company Number: US-MERCK-0510USA03795

PATIENT
  Age: 61 Year
  Sex: Female
  Weight: 57 kg

DRUGS (13)
  1. CALCIUM (UNSPECIFIED) [Concomitant]
     Route: 065
  2. VITAMIN D (UNSPECIFIED) [Concomitant]
     Route: 065
  3. VIOXX [Suspect]
     Indication: ARTHRITIS
     Route: 048
     Dates: start: 19990818, end: 20040930
  4. VIOXX [Suspect]
     Route: 048
     Dates: start: 20000419
  5. TYLENOL (CAPLET) [Concomitant]
     Route: 065
  6. ASPIRIN [Concomitant]
     Route: 065
     Dates: end: 20000301
  7. NPH INSULIN [Concomitant]
     Route: 051
  8. FOSAMAX [Suspect]
     Route: 048
  9. GLYBURIDE [Concomitant]
     Route: 048
  10. GLUCOPHAGE [Concomitant]
     Route: 048
  11. AVAPRO [Concomitant]
     Route: 065
  12. PRAVACHOL [Concomitant]
     Route: 065
  13. TAMOXIFEN CITRATE [Concomitant]
     Route: 065

REACTIONS (29)
  - ARTHRALGIA [None]
  - BACK PAIN [None]
  - BLOOD GLUCOSE DECREASED [None]
  - CARDIOVASCULAR DISORDER [None]
  - CAROTID ARTERY STENOSIS [None]
  - CAROTID BRUIT [None]
  - CEREBRAL ARTERIOSCLEROSIS [None]
  - CEREBROVASCULAR ACCIDENT [None]
  - CHEST PAIN [None]
  - COUGH [None]
  - DYSPNOEA [None]
  - FAILURE TO THRIVE [None]
  - GROIN PAIN [None]
  - HEADACHE [None]
  - HYPERTENSION [None]
  - HYPONATRAEMIA [None]
  - MACULAR DEGENERATION [None]
  - MAJOR DEPRESSION [None]
  - MOUNTAIN SICKNESS ACUTE [None]
  - MYOCARDIAL INFARCTION [None]
  - NAUSEA [None]
  - OSTEOPOROSIS [None]
  - PAIN IN EXTREMITY [None]
  - PELVIC PAIN [None]
  - PERIPHERAL VASCULAR DISORDER [None]
  - SINUS TACHYCARDIA [None]
  - THROMBOEMBOLIC STROKE [None]
  - URINARY TRACT INFECTION [None]
  - VOMITING [None]
